FAERS Safety Report 7229802-3 (Version None)
Quarter: 2011Q1

REPORT INFORMATION
  Report Type: 
  Country: None (occurrence: None)
  Receive Date: 20110117
  Receipt Date: 20110114
  Transmission Date: 20110831
  Serious: Yes (Other)
  Sender: FDA-Public Use
  Company Number: BR-ABBOTT-10P-020-0687747-00

PATIENT
  Age: 21 Year
  Sex: Male
  Weight: 80 kg

DRUGS (2)
  1. DEPAKOTE ER [Suspect]
     Indication: EPILEPSY
     Dosage: 2500MG DAILY
     Route: 048
     Dates: start: 20040101
  2. LAMOTRIGINE [Concomitant]
     Indication: CONVULSION PROPHYLAXIS
     Route: 048
     Dates: start: 20080101

REACTIONS (6)
  - FIBULA FRACTURE [None]
  - ALOPECIA [None]
  - SOMNOLENCE [None]
  - GINGIVITIS [None]
  - FALL [None]
  - THROMBOCYTOPENIA [None]
